FAERS Safety Report 6368527-3 (Version None)
Quarter: 2009Q3

REPORT INFORMATION
  Report Type: 
  Country: None (occurrence: None)
  Receive Date: 20090922
  Receipt Date: 20090911
  Transmission Date: 20100115
  Serious: Yes (Other)
  Sender: FDA-Public Use
  Company Number: D0062523A

PATIENT
  Sex: Male

DRUGS (2)
  1. ZEFFIX [Suspect]
     Dosage: 100MG PER DAY
     Route: 048
     Dates: start: 20020901, end: 20090801
  2. HEPSERA [Concomitant]
     Route: 065
     Dates: start: 20071220, end: 20080301

REACTIONS (1)
  - INFERTILITY MALE [None]
